FAERS Safety Report 7931220-7 (Version None)
Quarter: 2011Q4

REPORT INFORMATION
  Report Type: 
  Country: None (occurrence: None)
  Receive Date: 20111121
  Receipt Date: 20111114
  Transmission Date: 20120403
  Serious: Yes (Other)
  Sender: FDA-Public Use
  Company Number: CHPA2011US016072

PATIENT
  Age: 93 Year
  Sex: Female

DRUGS (3)
  1. SOTALOL HCL [Concomitant]
     Indication: HEART RATE IRREGULAR
     Dosage: 40 MG, BID
  2. GAS-X EXTRA STRENGTH SOFTGELS [Suspect]
     Indication: FLATULENCE
     Dosage: 125 MG, ONCE/SINGLE
     Route: 048
     Dates: start: 20111111, end: 20111111
  3. LOTREL [Concomitant]
     Indication: HYPERTENSION
     Dosage: 5/20 MG, UNK

REACTIONS (3)
  - HYPERTENSION [None]
  - MUSCLE SPASMS [None]
  - NAUSEA [None]
